FAERS Safety Report 13763057 (Version 1)
Quarter: 2017Q3

REPORT INFORMATION
  Report Type: Spontaneous
  Country: US (occurrence: US)
  Receive Date: 20170718
  Receipt Date: 20170718
  Transmission Date: 20171127
  Serious: Yes (Other)
  Sender: FDA-Public Use
  Company Number: None

PATIENT
  Age: 73 Year
  Sex: Male

DRUGS (1)
  1. REVLIMID [Suspect]
     Active Substance: LENALIDOMIDE
     Indication: PLASMA CELL MYELOMA
     Route: 048
     Dates: start: 20170705

REACTIONS (5)
  - Micturition urgency [None]
  - Lung infiltration [None]
  - Pyrexia [None]
  - Cough [None]
  - Pneumonia [None]

NARRATIVE: CASE EVENT DATE: 20170709
